FAERS Safety Report 10911963 (Version 1)
Quarter: 2015Q1

REPORT INFORMATION
  Report Type: Not Available
  Country: IN (occurrence: IN)
  Receive Date: 20150313
  Receipt Date: 20150313
  Transmission Date: 20150721
  Serious: No
  Sender: FDA-Public Use
  Company Number: IN-LUPIN PHARMACEUTICALS INC.-E2B_00003023

PATIENT
  Age: 25 Year
  Sex: Male

DRUGS (1)
  1. XIMECEFF [Suspect]
     Active Substance: CEFIXIME
     Indication: MALARIA
     Route: 048
     Dates: start: 20141221

REACTIONS (1)
  - Nausea [Not Recovered/Not Resolved]

NARRATIVE: CASE EVENT DATE: 20141221
